FAERS Safety Report 18624418 (Version 1)
Quarter: 2020Q4

REPORT INFORMATION
  Report Type: Spontaneous
  Country: US (occurrence: US)
  Receive Date: 20201216
  Receipt Date: 20201216
  Transmission Date: 20210114
  Serious: Yes (Other)
  Sender: FDA-Public Use
  Company Number: US-PURDUE-USA-2020-0178321

PATIENT
  Sex: Male

DRUGS (3)
  1. OXYCONTIN [Suspect]
     Active Substance: OXYCODONE HYDROCHLORIDE
     Dosage: UNK
     Route: 048
     Dates: start: 2010
  2. OXYCONTIN [Suspect]
     Active Substance: OXYCODONE HYDROCHLORIDE
     Dosage: UNK
     Route: 048
     Dates: start: 2010
  3. OXYCONTIN [Suspect]
     Active Substance: OXYCODONE HYDROCHLORIDE
     Indication: PAIN MANAGEMENT
     Dosage: UNK
     Route: 048
     Dates: start: 2004

REACTIONS (15)
  - Amnesia [Unknown]
  - Sexual dysfunction [Unknown]
  - Hypersomnia [Unknown]
  - Overdose [Unknown]
  - Memory impairment [Unknown]
  - Social anxiety disorder [Unknown]
  - Fatigue [Unknown]
  - Lethargy [Unknown]
  - Dependence [Unknown]
  - Withdrawal syndrome [Unknown]
  - Loss of consciousness [Unknown]
  - Dental caries [Unknown]
  - Dry mouth [Unknown]
  - Quality of life decreased [Unknown]
  - Depression [Unknown]
